FAERS Safety Report 23378103 (Version 1)
Quarter: 2024Q1

REPORT INFORMATION
  Report Type: Spontaneous
  Country: US (occurrence: None)
  Receive Date: 20240105
  Receipt Date: 20240105
  Transmission Date: 20240410
  Serious: Yes (Other)
  Sender: FDA-Public Use
  Company Number: None

PATIENT
  Age: 63 Year
  Sex: Female

DRUGS (1)
  1. ROZLYTREK [Suspect]
     Active Substance: ENTRECTINIB

REACTIONS (5)
  - Vomiting [None]
  - Cognitive disorder [None]
  - Slow speech [None]
  - Hypoaesthesia oral [None]
  - Balance disorder [None]

NARRATIVE: CASE EVENT DATE: 20240103
